FAERS Safety Report 11152715 (Version 4)
Quarter: 2015Q3

REPORT INFORMATION
  Report Type: Spontaneous
  Country: US (occurrence: US)
  Receive Date: 20150601
  Receipt Date: 20150723
  Transmission Date: 20151125
  Serious: Yes (Hospitalization, Other)
  Sender: FDA-Public Use
  Company Number: US-UNITED THERAPEUTICS-UNT-2015-006210

PATIENT
  Age: 46 Year
  Sex: Female
  Weight: 63.49 kg

DRUGS (6)
  1. TRACLEER [Concomitant]
     Active Substance: BOSENTAN
     Indication: PRODUCT USED FOR UNKNOWN INDICATION
  2. LOVENOX [Concomitant]
     Active Substance: ENOXAPARIN SODIUM
     Indication: PRODUCT USED FOR UNKNOWN INDICATION
  3. ADCIRCA [Concomitant]
     Active Substance: TADALAFIL
     Indication: PRODUCT USED FOR UNKNOWN INDICATION
  4. REMODULIN [Suspect]
     Active Substance: TREPROSTINIL
     Indication: PULMONARY ARTERIAL HYPERTENSION
     Dosage: 0.1555 ?G/KG, CONTINUING
     Route: 041
     Dates: start: 20121214
  5. COUMADIN [Concomitant]
     Active Substance: WARFARIN SODIUM
     Indication: PRODUCT USED FOR UNKNOWN INDICATION
  6. REMODULIN [Suspect]
     Active Substance: TREPROSTINIL
     Dosage: 0.1555 ?G/KG, CONTINUING
     Route: 041
     Dates: start: 20130124

REACTIONS (7)
  - Syncope [Unknown]
  - Drug dose omission [Unknown]
  - Malaise [Unknown]
  - Device leakage [Unknown]
  - Injection site discharge [Unknown]
  - Device related infection [Unknown]
  - Vomiting [Unknown]

NARRATIVE: CASE EVENT DATE: 20150522
